FAERS Safety Report 11702093 (Version 1)
Quarter: 2015Q4

REPORT INFORMATION
  Report Type: Spontaneous
  Country: US (occurrence: US)
  Receive Date: 20151104
  Receipt Date: 20151104
  Transmission Date: 20160304
  Serious: No
  Sender: FDA-Public Use
  Company Number: US-ELI_LILLY_AND_COMPANY-US201101002765

PATIENT
  Sex: Female

DRUGS (1)
  1. FORTEO [Suspect]
     Active Substance: TERIPARATIDE
     Indication: OSTEOPOROSIS
     Dosage: 20 UG, DAILY (1/D)

REACTIONS (7)
  - Dysstasia [Unknown]
  - Dizziness postural [Unknown]
  - Fear of falling [Unknown]
  - Dizziness [Unknown]
  - Dizziness [Recovered/Resolved]
  - Asthenia [Unknown]
  - Nausea [Unknown]
